FAERS Safety Report 9523706 (Version 3)
Quarter: 2014Q3

REPORT INFORMATION
  Report Type: Spontaneous
  Country: US (occurrence: US)
  Receive Date: 20130913
  Receipt Date: 20140926
  Transmission Date: 20150326
  Serious: No
  Sender: FDA-Public Use
  Company Number: US-B.I. PHARMACEUTICALS,INC./RIDGEFIELD-2013-BI-27359BP

PATIENT
  Age: 76 Year
  Sex: Male
  Weight: 64 kg

DRUGS (9)
  1. OMEGA 3 [Concomitant]
     Active Substance: OMEGA-3 FATTY ACIDS
     Dosage: 1000 MG
     Route: 048
     Dates: start: 2012
  2. VITAMIN B12 [Concomitant]
     Active Substance: CYANOCOBALAMIN
     Dosage: 1000 MG
     Route: 048
     Dates: start: 2012
  3. VITAMIN D3 [Concomitant]
     Active Substance: CHOLECALCIFEROL
     Dosage: DOSE PER APPLICATION: 1000 MG / 500 MG, DAILY DOSE: 1000 MG / 500 MG
     Route: 048
     Dates: start: 2012
  4. MULTIVITAMIN [Concomitant]
     Active Substance: VITAMINS
     Dosage: DOSE PER APPLICATION: 1 TABLET, DAILY DOSE: 1 TABLET
     Route: 048
     Dates: start: 2012
  5. VITAMIN B6 [Concomitant]
     Active Substance: PYRIDOXINE HYDROCHLORIDE
     Dosage: 100 MG
     Route: 048
     Dates: start: 2012
  6. VITAMIN A [Concomitant]
     Active Substance: VITAMIN A
     Dosage: 8000 U
     Route: 048
     Dates: start: 2012
  7. VITAMIN C [Concomitant]
     Active Substance: ASCORBIC ACID
     Dosage: DOSE PER APPLICATION: 1000 MG / 500 MG DAILY DOSE: 1000 MG / 500 MG
     Route: 048
     Dates: start: 2012
  8. SPIRIVA [Suspect]
     Active Substance: TIOTROPIUM BROMIDE MONOHYDRATE
     Dosage: 18 MCG
     Route: 055
     Dates: start: 20130810, end: 20130817
  9. SPIRIVA [Suspect]
     Active Substance: TIOTROPIUM BROMIDE MONOHYDRATE
     Indication: CHRONIC OBSTRUCTIVE PULMONARY DISEASE
     Dosage: 18 MCG
     Route: 055
     Dates: start: 20130729, end: 20130729

REACTIONS (8)
  - Miosis [Not Recovered/Not Resolved]
  - Vision blurred [Not Recovered/Not Resolved]
  - Rash [Recovered/Resolved]
  - Rash [Not Recovered/Not Resolved]
  - Pruritus [Not Recovered/Not Resolved]
  - Eye swelling [Not Recovered/Not Resolved]
  - Pruritus [Recovered/Resolved]
  - Abdominal hernia [Recovered/Resolved]

NARRATIVE: CASE EVENT DATE: 201307
